FAERS Safety Report 10305534 (Version 4)
Quarter: 2015Q1

REPORT INFORMATION
  Report Type: Report from Study
  Country: US (occurrence: US)
  Receive Date: 20140715
  Receipt Date: 20150108
  Transmission Date: 20150720
  Serious: Yes (Hospitalization, Other)
  Sender: FDA-Public Use
  Company Number: US-SA-2014SA090273

PATIENT
  Age: 52 Year
  Sex: Female

DRUGS (1)
  1. AUBAGIO [Suspect]
     Active Substance: TERIFLUNOMIDE
     Indication: MULTIPLE SCLEROSIS
     Route: 048
     Dates: start: 20121203, end: 20140801

REACTIONS (9)
  - Von Willebrand^s disease [Unknown]
  - Back pain [Unknown]
  - Multiple sclerosis relapse [Unknown]
  - Diverticulitis [Unknown]
  - Gastric disorder [Unknown]
  - Intervertebral disc operation [Unknown]
  - Road traffic accident [Unknown]
  - Thyroid cancer [Unknown]
  - Fatigue [Unknown]
